FAERS Safety Report 12170508 (Version 2)
Quarter: 2016Q2

REPORT INFORMATION
  Report Type: Spontaneous
  Country: JP (occurrence: JP)
  Receive Date: 20160311
  Receipt Date: 20160404
  Transmission Date: 20160815
  Serious: Yes (Death, Hospitalization)
  Sender: FDA-Public Use
  Company Number: JP-PFIZER INC-2015454120

PATIENT
  Age: 48 Year
  Sex: Male
  Weight: 69 kg

DRUGS (3)
  1. INLYTA [Suspect]
     Active Substance: AXITINIB
     Dosage: 4 MG, 2X/DAY
     Route: 048
     Dates: start: 20151222, end: 20151231
  2. INLYTA [Suspect]
     Active Substance: AXITINIB
     Indication: RENAL CELL CARCINOMA
     Dosage: 5 MG, 2X/DAY
     Route: 048
     Dates: start: 20151120, end: 20151210
  3. MORPHINE [Concomitant]
     Active Substance: MORPHINE
     Indication: PAIN
     Dosage: 10 MG, DAILY
     Route: 042
     Dates: start: 20151211, end: 20151231

REACTIONS (5)
  - Infection [Fatal]
  - Decreased appetite [Recovering/Resolving]
  - Renal cell carcinoma [Fatal]
  - Disease progression [Fatal]
  - Malaise [Unknown]

NARRATIVE: CASE EVENT DATE: 20151129
